FAERS Safety Report 4829090-9 (Version None)
Quarter: 2005Q4

REPORT INFORMATION
  Report Type: 
  Country: None (occurrence: None)
  Receive Date: 20051027
  Receipt Date: 20050607
  Transmission Date: 20060501
  Serious: Yes (Hospitalization, Other)
  Sender: FDA-Public Use
  Company Number: HQWYE326808JUN05

PATIENT
  Age: 60 Year
  Sex: Female
  Weight: 92.62 kg

DRUGS (9)
  1. PREMARIN [Suspect]
     Dosage: ORAL
     Route: 048
     Dates: start: 19900101, end: 20050101
  2. SYNTHROID [Concomitant]
  3. CLARITIN [Concomitant]
  4. COUMADIN [Concomitant]
  5. PAXIL [Concomitant]
  6. XANAX [Concomitant]
  7. METOCLOPRAMIDE HYDROCHLORIDE [Concomitant]
  8. ZOCOR [Concomitant]
  9. VITAMINS (VITAMINS) [Concomitant]

REACTIONS (1)
  - BREAST CANCER [None]
